FAERS Safety Report 5386056-0 (Version None)
Quarter: 2007Q3

REPORT INFORMATION
  Report Type: 
  Country: None (occurrence: None)
  Receive Date: 20070710
  Receipt Date: 20070628
  Transmission Date: 20080115
  Serious: Yes (Other)
  Sender: FDA-Public Use
  Company Number: 015693

PATIENT
  Age: 60 Year
  Sex: Female

DRUGS (3)
  1. TAMOXIFEN CITRATE [Suspect]
     Indication: BREAST CANCER
     Dates: end: 20010501
  2. DOXORUBICIN HCL [Suspect]
     Indication: BREAST CANCER
     Dosage: 60 MG/M2, Q3WEEKS, 4 CYCLES, INTRAVENOUS
     Route: 042
  3. CYCLOPHOSPHAMIDE [Suspect]
     Indication: BREAST CANCER
     Dosage: 600 MG/M2, Q3WEEKS, 4 CYCLES

REACTIONS (2)
  - SQUAMOUS CELL CARCINOMA [None]
  - TONGUE CARCINOMA STAGE I [None]
